FAERS Safety Report 15434538 (Version 1)
Quarter: 2018Q3

REPORT INFORMATION
  Report Type: Spontaneous
  Country: US (occurrence: US)
  Receive Date: 20180927
  Receipt Date: 20180927
  Transmission Date: 20181010
  Serious: Yes (Hospitalization)
  Sender: FDA-Public Use
  Company Number: US-JNJFOC-20180926605

PATIENT
  Age: 46 Year
  Sex: Female

DRUGS (1)
  1. INVOKANA [Suspect]
     Active Substance: CANAGLIFLOZIN
     Indication: TYPE 2 DIABETES MELLITUS
     Route: 048

REACTIONS (7)
  - Gangrene [Unknown]
  - Toe amputation [Unknown]
  - Foot amputation [Unknown]
  - Cellulitis [Unknown]
  - Diabetic foot infection [Unknown]
  - Impaired healing [Unknown]
  - Sepsis [Unknown]

NARRATIVE: CASE EVENT DATE: 201604
